FAERS Safety Report 6493604-6 (Version None)
Quarter: 2009Q4

REPORT INFORMATION
  Report Type: 
  Country: None (occurrence: None)
  Receive Date: 20091214
  Receipt Date: 20091202
  Transmission Date: 20100525
  Serious: Yes (Other)
  Sender: FDA-Public Use
  Company Number: A0834398A

PATIENT

DRUGS (2)
  1. FLU VACCINE [Suspect]
     Indication: PROPHYLAXIS
     Route: 065
  2. TREXIMET [Suspect]
     Indication: MIGRAINE
     Route: 048

REACTIONS (2)
  - CONTUSION [None]
  - HAEMORRHAGE [None]
